FAERS Safety Report 4569287-9 (Version None)
Quarter: 2005Q1

REPORT INFORMATION
  Report Type: 
  Country: None (occurrence: None)
  Receive Date: 20050118
  Receipt Date: 20040224
  Transmission Date: 20050727
  Serious: Yes (Other)
  Sender: FDA-Public Use
  Company Number: HQWYE374226FEB04

PATIENT
  Age: 72 Year
  Sex: Female
  Weight: 72.64 kg

DRUGS (1)
  1. PREMPRO [Suspect]
     Indication: HORMONE REPLACEMENT THERAPY
     Dosage: 0.625 MG/ 5MG DAILY, ORAL
     Route: 048
     Dates: end: 20031201

REACTIONS (2)
  - FEELING HOT [None]
  - NAUSEA [None]
